FAERS Safety Report 4989160-1 (Version None)
Quarter: 2006Q1

REPORT INFORMATION
  Report Type: 
  Country: None (occurrence: None)
  Receive Date: 20060309
  Receipt Date: 20050218
  Transmission Date: 20060701
  Serious: Yes (Other)
  Sender: FDA-Public Use
  Company Number: 0510005

PATIENT
  Sex: Male
  Weight: 0.4536 kg

DRUGS (1)
  1. ORFADIN [Suspect]
     Indication: TYROSINAEMIA
     Dosage: 2 MILLIGRAM TWICE DAILY ORAL
     Route: 048
     Dates: start: 20050202, end: 20050218

REACTIONS (1)
  - LIVER TRANSPLANT [None]
